FAERS Safety Report 9222207 (Version 3)
Quarter: 2013Q2

REPORT INFORMATION
  Report Type: Report from Study
  Country: CA (occurrence: CA)
  Receive Date: 20130410
  Receipt Date: 20130418
  Transmission Date: 20140414
  Serious: Yes (Other)
  Sender: FDA-Public Use
  Company Number: PHHY2013CA033427

PATIENT
  Age: 48 Year
  Sex: Male

DRUGS (10)
  1. CLOZARIL [Suspect]
     Indication: SCHIZOPHRENIA
     Dosage: 600 MG, UNK
     Route: 048
     Dates: start: 20101019, end: 20130404
  2. ACETAMINOPHEN [Concomitant]
     Dosage: 1-2 DF, PRN
     Route: 048
     Dates: start: 20130122
  3. METFORMIN HCL [Concomitant]
     Dosage: 500 MG, BID
     Route: 048
     Dates: start: 20130105
  4. ASPIRIN [Concomitant]
     Dosage: 325 MG, UNK
     Route: 048
     Dates: start: 20130105
  5. ZYPREXA ZYDIS [Concomitant]
     Dosage: 10 MG, Q4H
     Route: 048
     Dates: start: 20130105
  6. ZYPREXA [Concomitant]
     Dosage: 10 MG, PRN
     Route: 030
     Dates: start: 20130105
  7. ATORVASTATIN CALCIUM [Concomitant]
     Dosage: 40 MG, UNK
     Route: 048
     Dates: start: 20130105
  8. ATENOLOL [Concomitant]
     Dosage: 25 MG, UNK
     Route: 048
     Dates: start: 20130105
  9. PANTOPRAZOLE SODIUM [Concomitant]
     Dosage: 40 MG, UNK
     Route: 048
     Dates: start: 20130105
  10. LORAZEPAM [Concomitant]
     Dosage: 1 MG, UNK
     Route: 048

REACTIONS (10)
  - Obesity [Unknown]
  - Weight increased [Unknown]
  - Hyperlipidaemia [Unknown]
  - Diabetes mellitus [Unknown]
  - Agranulocytosis [Unknown]
  - White blood cell count decreased [Not Recovered/Not Resolved]
  - Neutrophil count decreased [Not Recovered/Not Resolved]
  - Body temperature increased [Recovered/Resolved]
  - Activated partial thromboplastin time prolonged [Unknown]
  - Fatigue [Unknown]
